FAERS Safety Report 5165301-0 (Version None)
Quarter: 2006Q4

REPORT INFORMATION
  Report Type: 
  Country: None (occurrence: None)
  Receive Date: 20061124
  Receipt Date: 20061117
  Transmission Date: 20070319
  Serious: Yes (Other)
  Sender: FDA-Public Use
  Company Number: 2006142906

PATIENT
  Age: 14 Year
  Sex: Female
  Weight: 54 kg

DRUGS (3)
  1. SERTRALINE [Suspect]
     Indication: OBSESSIVE-COMPULSIVE DISORDER
     Dosage: 200 MG (1 D)
  2. OLANZAPINE [Suspect]
     Indication: OBSESSIVE-COMPULSIVE DISORDER
     Dosage: 10 MG (1 D)
  3. LORAZEPAM [Concomitant]

REACTIONS (6)
  - DEPRESSION [None]
  - DRUG LEVEL INCREASED [None]
  - EPILEPSY [None]
  - GRAND MAL CONVULSION [None]
  - METABOLIC DISORDER [None]
  - VERTIGO [None]
